FAERS Safety Report 18769098 (Version 4)
Quarter: 2022Q1

REPORT INFORMATION
  Report Type: Spontaneous
  Country: US (occurrence: US)
  Receive Date: 20210121
  Receipt Date: 20220218
  Transmission Date: 20220424
  Serious: No
  Sender: FDA-Public Use
  Company Number: US-AIMMUNE THERAPEUTICS, INC.-2021AIMT00025

PATIENT

DRUGS (4)
  1. PALFORZIA [Suspect]
     Active Substance: PEANUT
     Indication: Food allergy
     Dosage: 300 MG, 1X/DAY
     Route: 048
     Dates: start: 20200824, end: 20210113
  2. PALFORZIA [Suspect]
     Active Substance: PEANUT
     Dosage: 240 MG, 1X/DAY
     Route: 048
     Dates: start: 20210113, end: 2021
  3. PALFORZIA [Suspect]
     Active Substance: PEANUT
     Dosage: 300 MG, 1X/DAY
     Route: 048
     Dates: start: 2021, end: 20220204
  4. EPIPEN [Concomitant]
     Active Substance: EPINEPHRINE
     Indication: Product used for unknown indication
     Dosage: 0.3 MG

REACTIONS (9)
  - Flushing [Recovered/Resolved]
  - Flushing [Recovered/Resolved]
  - Hypersomnia [Recovered/Resolved]
  - Hypersensitivity [Recovered/Resolved]
  - Abdominal discomfort [Recovered/Resolved]
  - Throat tightness [Recovered/Resolved]
  - Hypersensitivity [Recovered/Resolved]
  - Abdominal discomfort [Recovered/Resolved]
  - Throat tightness [Recovered/Resolved]

NARRATIVE: CASE EVENT DATE: 20210106
